FAERS Safety Report 8789973 (Version 1)
Quarter: 2012Q4

REPORT INFORMATION
  Report Type: 
  Country: US (occurrence: US)
  Receive Date: 20120917
  Receipt Date: 20120917
  Transmission Date: 20130627
  Serious: No
  Sender: FDA-Public Use
  Company Number: US-BAYER-2012-096035

PATIENT
  Age: 35 Year
  Sex: Female

DRUGS (1)
  1. EOVIST [Suspect]
     Dosage: 6 ml, ONCE
     Route: 042
     Dates: start: 20120912, end: 20120912

REACTIONS (3)
  - Dyspnoea [None]
  - Chest pain [None]
  - Cough [None]
